FAERS Safety Report 7979250-3 (Version None)
Quarter: 2011Q4

REPORT INFORMATION
  Report Type: 
  Country: None (occurrence: None)
  Receive Date: 20111214
  Receipt Date: 20111214
  Transmission Date: 20120403
  Serious: Yes (Other)
  Sender: FDA-Public Use
  Company Number: None

PATIENT
  Sex: Female
  Weight: 56.699 kg

DRUGS (2)
  1. VYVANSE [Suspect]
     Indication: ATTENTION DEFICIT/HYPERACTIVITY DISORDER
     Dosage: 1
     Route: 048
     Dates: start: 20101101, end: 20111213
  2. VYVANSE [Concomitant]
     Dosage: 1
     Route: 048
     Dates: start: 20110920, end: 20111213

REACTIONS (4)
  - CAPSULE PHYSICAL ISSUE [None]
  - PRODUCT TAMPERING [None]
  - PRODUCT QUALITY ISSUE [None]
  - DRUG EFFECT DECREASED [None]
